FAERS Safety Report 25998727 (Version 2)
Quarter: 2025Q4

REPORT INFORMATION
  Report Type: Report from Study
  Country: CN (occurrence: CN)
  Receive Date: 20251105
  Receipt Date: 20251111
  Transmission Date: 20260117
  Serious: Yes (Hospitalization)
  Sender: ABBVIE
  Company Number: CN-ABBVIE-6527934

PATIENT
  Age: 73 Year
  Sex: Female

DRUGS (8)
  1. DEXAMETHASONE [Suspect]
     Active Substance: DEXAMETHASONE
     Indication: Diabetic retinal oedema
     Dosage: ONCE
     Route: 050
     Dates: start: 20250113, end: 20250113
  2. CONBERCEPT [Concomitant]
     Active Substance: CONBERCEPT
     Indication: Diabetic retinal oedema
     Route: 050
     Dates: start: 20240507
  3. CONBERCEPT [Concomitant]
     Active Substance: CONBERCEPT
     Indication: Diabetic retinal oedema
     Route: 050
     Dates: start: 20240614
  4. CONBERCEPT [Concomitant]
     Active Substance: CONBERCEPT
     Indication: Diabetic retinal oedema
     Route: 050
     Dates: start: 20241028
  5. LUCENTIS [Concomitant]
     Active Substance: RANIBIZUMAB
     Indication: Diabetic retinal oedema
     Route: 050
     Dates: start: 20241209
  6. IRBESARTAN AND HYDROCHLOROTHIAZIDE [Concomitant]
     Active Substance: HYDROCHLOROTHIAZIDE\IRBESARTAN
     Indication: Hypertension
     Route: 048
     Dates: start: 2000
  7. NIFEDIPINE [Concomitant]
     Active Substance: NIFEDIPINE
     Indication: Hypertension
     Dosage: SUSTAINED RELEASE TABLETS
     Route: 048
     Dates: start: 2000
  8. LINAGLIPTIN [Concomitant]
     Active Substance: LINAGLIPTIN
     Indication: Diabetes mellitus
     Route: 048

REACTIONS (1)
  - Vitreous haemorrhage [Not Recovered/Not Resolved]

NARRATIVE: CASE EVENT DATE: 20250905
